FAERS Safety Report 7022123-3 (Version None)
Quarter: 2010Q3

REPORT INFORMATION
  Report Type: 
  Country: None (occurrence: None)
  Receive Date: 20100930
  Receipt Date: 20100923
  Transmission Date: 20110219
  Serious: Yes (Death, Other)
  Sender: FDA-Public Use
  Company Number: BR-MEDIMMUNE-MEDI-0011562

PATIENT
  Sex: Female
  Weight: 5.18 kg

DRUGS (4)
  1. SYNAGIS [Suspect]
     Route: 030
     Dates: start: 20100528, end: 20100909
  2. SYNAGIS [Suspect]
  3. CAPTOPRIL [Concomitant]
     Indication: BLOOD PRESSURE MANAGEMENT
     Dosage: 10 DROPS EACH 12 HOURS
     Route: 048
     Dates: start: 20100101, end: 20100915
  4. FUROSEMIDE [Concomitant]
     Indication: DIURETIC THERAPY
     Dosage: 10 DROPS EACH 12 HOURS
     Dates: start: 20100101, end: 20100915

REACTIONS (4)
  - PAIN [None]
  - PYREXIA [None]
  - RESPIRATORY FAILURE [None]
  - VENTRICULAR SEPTAL DEFECT [None]
